FAERS Safety Report 16782871 (Version 1)
Quarter: 2019Q3

REPORT INFORMATION
  Report Type: Spontaneous
  Country: US (occurrence: US)
  Receive Date: 20190906
  Receipt Date: 20190906
  Transmission Date: 20191005
  Serious: No
  Sender: FDA-Public Use
  Company Number: US-009507513-1908USA013156

PATIENT
  Age: 27 Year
  Sex: Female
  Weight: 116.55 kg

DRUGS (1)
  1. NEXPLANON [Suspect]
     Active Substance: ETONOGESTREL
     Indication: MENORRHAGIA
     Dosage: FREQUENCY: FOR 3 YEARS
     Dates: start: 20190809, end: 20190816

REACTIONS (6)
  - Implant site swelling [Recovered/Resolved]
  - Complication associated with device [Recovered/Resolved]
  - Implant site infection [Recovered/Resolved]
  - Implant site erythema [Recovered/Resolved]
  - Implant site pustules [Recovered/Resolved]
  - Product use in unapproved indication [Unknown]

NARRATIVE: CASE EVENT DATE: 20190809
